FAERS Safety Report 9133159 (Version 2)
Quarter: 2013Q1

REPORT INFORMATION
  Report Type: Spontaneous
  Country: JP (occurrence: JP)
  Receive Date: 20130301
  Receipt Date: 20130313
  Transmission Date: 20140127
  Serious: Yes (Other)
  Sender: FDA-Public Use
  Company Number: JP-ASTRAZENECA-2013SE12363

PATIENT
  Age: 61 Year
  Sex: Female

DRUGS (4)
  1. PROPOFOL [Suspect]
     Route: 042
  2. FENTANYL [Concomitant]
     Route: 065
  3. MIDAZOLAM [Concomitant]
     Route: 065
  4. DEXMEDETOMIDINE HYDROCHLORIDE [Concomitant]
     Route: 065

REACTIONS (1)
  - Laryngeal oedema [Recovered/Resolved]
